FAERS Safety Report 4432563-4 (Version None)
Quarter: 2004Q3

REPORT INFORMATION
  Report Type: 
  Country: None (occurrence: None)
  Receive Date: 20040820
  Receipt Date: 20040811
  Transmission Date: 20050211
  Serious: Yes (Hospitalization)
  Sender: FDA-Public Use
  Company Number: A001-002-006176

PATIENT
  Age: 90 Year
  Sex: Female
  Weight: 61.2 kg

DRUGS (4)
  1. ARICEPT [Suspect]
     Indication: DEMENTIA
     Dosage: 7.5 MG , ORAL
     Route: 048
  2. LIPITOR [Concomitant]
  3. VERAPAMIL 9VERAPAMIL) [Concomitant]
  4. VITAMINS (VITAMINS) [Concomitant]

REACTIONS (4)
  - ANAESTHETIC COMPLICATION [None]
  - COMA [None]
  - FALL [None]
  - HUMERUS FRACTURE [None]
